FAERS Safety Report 19433171 (Version 1)
Quarter: 2021Q2

REPORT INFORMATION
  Report Type: Spontaneous
  Country: US (occurrence: US)
  Receive Date: 20210617
  Receipt Date: 20210617
  Transmission Date: 20210717
  Serious: Yes (Hospitalization)
  Sender: FDA-Public Use
  Company Number: US-TEVA-2021-US-1922469

PATIENT
  Age: 48 Year
  Sex: Female

DRUGS (3)
  1. SELINEXOR [Interacting]
     Active Substance: SELINEXOR
     Indication: PLASMA CELL MYELOMA
     Dosage: 80MG TWICE IN A WEEK
     Route: 048
  2. DEXAMETHASONE. [Interacting]
     Active Substance: DEXAMETHASONE
     Indication: PLASMA CELL MYELOMA
     Dosage: 20MG TWICE IN A WEEK
     Route: 048
  3. TRIAMCINOLONE ACETONIDE. [Suspect]
     Active Substance: TRIAMCINOLONE ACETONIDE
     Indication: RASH PRURITIC
     Dosage: 80MG RECEIVED 2 DOSES
     Route: 030

REACTIONS (2)
  - Substance-induced psychotic disorder [Recovering/Resolving]
  - Drug interaction [Unknown]
